FAERS Safety Report 5720963-1 (Version None)
Quarter: 2008Q2

REPORT INFORMATION
  Report Type: 
  Country: None (occurrence: None)
  Receive Date: 20080425
  Receipt Date: 20080425
  Transmission Date: 20081010
  Serious: Yes (Hospitalization)
  Sender: FDA-Public Use
  Company Number: None

PATIENT
  Sex: Female

DRUGS (1)
  1. LOVENOX [Suspect]
     Indication: PULMONARY EMBOLISM
     Dosage: 110 UNITS BID SQ
     Route: 058
     Dates: start: 20071223, end: 20080101

REACTIONS (7)
  - ABSCESS [None]
  - BETA HAEMOLYTIC STREPTOCOCCAL INFECTION [None]
  - COMPUTERISED TOMOGRAM ABDOMEN ABNORMAL [None]
  - CULTURE WOUND POSITIVE [None]
  - INTRA-ABDOMINAL HAEMATOMA [None]
  - LABORATORY TEST ABNORMAL [None]
  - SHOCK HAEMORRHAGIC [None]
